FAERS Safety Report 4851657-2 (Version None)
Quarter: 2005Q4

REPORT INFORMATION
  Report Type: 
  Country: None (occurrence: None)
  Receive Date: 20051212
  Receipt Date: 20051016
  Transmission Date: 20060501
  Serious: Yes (Hospitalization)
  Sender: FDA-Public Use
  Company Number: IL-NOVOPROD-247796

PATIENT
  Age: 70 Year
  Sex: Male
  Weight: 174 kg

DRUGS (6)
  1. LEVEMIR [Suspect]
     Indication: INSULIN-REQUIRING TYPE II DIABETES MELLITUS
     Dosage: 20 IU, QD
     Route: 058
     Dates: start: 20050923
  2. FOSINOPRIL [Concomitant]
     Route: 048
     Dates: start: 20010101
  3. ASPIRIN [Concomitant]
     Dosage: 100 MG, UNK
     Route: 048
     Dates: start: 19990101
  4. OMEPRADEX [Concomitant]
     Dosage: 20 MG, UNK
     Route: 048
     Dates: start: 19990101
  5. ATORVASTATIN CALCIUM [Concomitant]
     Dosage: 20 MG, UNK
     Route: 048
     Dates: start: 20030101
  6. VALSARTAN [Concomitant]
     Dosage: 80 MG, UNK
     Route: 048
     Dates: start: 20040101

REACTIONS (10)
  - ATRIAL FLUTTER [None]
  - CHEST PAIN [None]
  - DILATATION ATRIAL [None]
  - FATIGUE [None]
  - HYPERHIDROSIS [None]
  - LEFT VENTRICULAR END-DIASTOLIC PRESSURE DECREASED [None]
  - MITRAL VALVE INCOMPETENCE [None]
  - PULMONARY HYPERTENSION [None]
  - TRICUSPID VALVE INCOMPETENCE [None]
  - VENTRICULAR HYPERTROPHY [None]
